FAERS Safety Report 10970401 (Version 4)
Quarter: 2015Q3

REPORT INFORMATION
  Report Type: Spontaneous
  Country: JP (occurrence: JP)
  Receive Date: 20150331
  Receipt Date: 20150916
  Transmission Date: 20151125
  Serious: Yes (Hospitalization, Other)
  Sender: FDA-Public Use
  Company Number: JP-ASTELLAS-2015JP006037AA

PATIENT
  Age: 65 Year
  Sex: Female
  Weight: 47 kg

DRUGS (20)
  1. SOLU-MEDROL [Suspect]
     Active Substance: METHYLPREDNISOLONE SODIUM SUCCINATE
     Indication: IMMUNOSUPPRESSANT DRUG THERAPY
     Dosage: UNK UNK, ONCE DAILY
     Route: 042
     Dates: start: 20131118, end: 20131126
  2. SIMULECT [Suspect]
     Active Substance: BASILIXIMAB
     Indication: CHRONIC KIDNEY DISEASE
     Route: 042
     Dates: start: 20131122, end: 20131122
  3. CEFAMEZIN ? [Concomitant]
     Indication: WOUND INFECTION
     Route: 042
     Dates: start: 20131118, end: 20131125
  4. NEXIUM [Concomitant]
     Active Substance: ESOMEPRAZOLE MAGNESIUM
     Indication: GASTRIC ULCER
     Route: 048
     Dates: start: 20131122
  5. HEPARIN [Suspect]
     Active Substance: HEPARIN SODIUM
     Indication: ATRIAL FIBRILLATION
     Route: 042
     Dates: start: 20131113, end: 20131120
  6. CELLCEPT [Suspect]
     Active Substance: MYCOPHENOLATE MOFETIL\MYCOPHENOLATE MOFETIL HYDROCHLORIDE
     Indication: IMMUNOSUPPRESSANT DRUG THERAPY
     Route: 048
     Dates: start: 20131122
  7. SIMULECT [Suspect]
     Active Substance: BASILIXIMAB
     Indication: IMMUNOSUPPRESSANT DRUG LEVEL
     Route: 042
     Dates: start: 20131118, end: 20131118
  8. BISOLVON [Concomitant]
     Active Substance: BROMHEXINE HYDROCHLORIDE
     Indication: SPUTUM RETENTION
     Dosage: UNK UNK, THRICE DAILY
     Route: 042
     Dates: start: 20131118, end: 20131126
  9. MEDROL [Suspect]
     Active Substance: METHYLPREDNISOLONE
     Indication: CHRONIC KIDNEY DISEASE
     Route: 048
     Dates: start: 20131127
  10. TAGAMET [Concomitant]
     Active Substance: CIMETIDINE
     Indication: GASTRIC ULCER
     Route: 042
     Dates: start: 20131118, end: 20131121
  11. SIGMART [Concomitant]
     Active Substance: NICORANDIL
     Indication: ATRIAL FIBRILLATION
     Route: 042
     Dates: start: 20131119, end: 20131127
  12. HYDRA                              /00030201/ [Concomitant]
     Indication: ANTIBIOTIC PROPHYLAXIS
     Route: 048
     Dates: start: 20131122, end: 20140220
  13. PROGRAF [Suspect]
     Active Substance: TACROLIMUS\TACROLIMUS ANHYDROUS
     Indication: CHRONIC KIDNEY DISEASE
  14. CELLCEPT [Suspect]
     Active Substance: MYCOPHENOLATE MOFETIL\MYCOPHENOLATE MOFETIL HYDROCHLORIDE
     Indication: CHRONIC KIDNEY DISEASE
  15. INOVAN                             /00360702/ [Concomitant]
     Indication: CIRCULATORY COLLAPSE
     Dosage: UNK UNK, CONTINUOUS
     Route: 042
     Dates: start: 20131118, end: 20131126
  16. ALLOID [Concomitant]
     Indication: GASTRIC ULCER
     Route: 048
     Dates: start: 20131122, end: 20140220
  17. PROGRAF [Suspect]
     Active Substance: TACROLIMUS\TACROLIMUS ANHYDROUS
     Indication: IMMUNOSUPPRESSANT DRUG THERAPY
     Dosage: 0.2 MG, CONTINUOUS
     Route: 042
     Dates: start: 20131118, end: 20131125
  18. GRACEPTOR [Suspect]
     Active Substance: TACROLIMUS
     Indication: CHRONIC KIDNEY DISEASE
     Route: 048
     Dates: start: 20131127
  19. SOLU-MEDROL [Suspect]
     Active Substance: METHYLPREDNISOLONE SODIUM SUCCINATE
     Indication: CHRONIC KIDNEY DISEASE
  20. ONOACT [Concomitant]
     Active Substance: LANDIOLOL HYDROCHLORIDE
     Indication: ATRIAL FIBRILLATION
     Route: 042
     Dates: start: 20131121, end: 20131127

REACTIONS (2)
  - Perirenal haematoma [Recovered/Resolved]
  - Cytomegalovirus infection [Recovered/Resolved]

NARRATIVE: CASE EVENT DATE: 20131120
